FAERS Safety Report 16609884 (Version 2)
Quarter: 2019Q3

REPORT INFORMATION
  Report Type: Report from Study
  Country: US (occurrence: US)
  Receive Date: 20190722
  Receipt Date: 20190816
  Transmission Date: 20191004
  Serious: Yes (Hospitalization)
  Sender: FDA-Public Use
  Company Number: US-BAYER-2019-134530

PATIENT
  Age: 54 Year
  Sex: Male
  Weight: 108.39 kg

DRUGS (3)
  1. ADEMPAS [Suspect]
     Active Substance: RIOCIGUAT
     Indication: PULMONARY ARTERIAL HYPERTENSION
     Dosage: 1 MG, TID
     Route: 048
     Dates: start: 20190625
  2. WARFARIN [Concomitant]
     Active Substance: WARFARIN
  3. ADEMPAS [Suspect]
     Active Substance: RIOCIGUAT
     Indication: PULMONARY ARTERIAL HYPERTENSION
     Dosage: 1 MG, TID
     Route: 048
     Dates: start: 20190701

REACTIONS (12)
  - Sluggishness [None]
  - Constipation [Unknown]
  - Pulmonary hypertension [None]
  - Weight increased [Unknown]
  - Skin discolouration [None]
  - Abdominal distension [None]
  - Lymphoedema [None]
  - Oedema [Not Recovered/Not Resolved]
  - Gastrointestinal sounds abnormal [None]
  - Hypersomnia [None]
  - Fluid overload [None]
  - Rash [None]
